FAERS Safety Report 8397851-8 (Version None)
Quarter: 2012Q2

REPORT INFORMATION
  Report Type: 
  Country: None (occurrence: None)
  Receive Date: 20120524
  Receipt Date: 20120510
  Transmission Date: 20120825
  Serious: Yes (Other)
  Sender: FDA-Public Use
  Company Number: ENTC2012-0090

PATIENT
  Age: 60 Year
  Sex: Female
  Weight: 54 kg

DRUGS (7)
  1. ROPINIROLE XL (ROPINIROLE) [Concomitant]
  2. SINEMET CR (LEVODOPA) [Concomitant]
  3. STALEVO 100 [Suspect]
     Indication: PARKINSON'S DISEASE
     Dosage: SEE IMAGE
     Route: 048
     Dates: end: 20120229
  4. STALEVO 100 [Suspect]
     Indication: PARKINSON'S DISEASE
     Dosage: SEE IMAGE
     Route: 048
     Dates: start: 20040101
  5. STALEVO 100 [Suspect]
     Indication: PARKINSON'S DISEASE
     Dosage: SEE IMAGE
     Route: 048
     Dates: start: 20110531
  6. CLONAZEPAM [Concomitant]
  7. STALEVO 100 [Suspect]

REACTIONS (2)
  - PARKINSON'S DISEASE [None]
  - DRUG INEFFECTIVE [None]
